FAERS Safety Report 9718584 (Version 2)
Quarter: 2014Q1

REPORT INFORMATION
  Report Type: Spontaneous
  Country: DE (occurrence: DE)
  Receive Date: 20131127
  Receipt Date: 20140124
  Transmission Date: 20141002
  Serious: Yes (Hospitalization, Other)
  Sender: FDA-Public Use
  Company Number: DE-BRISTOL-MYERS SQUIBB COMPANY-19830504

PATIENT
  Age: 38 Year
  Sex: Female

DRUGS (3)
  1. ABILIFY TABS 10 MG [Suspect]
     Indication: DEPRESSION
     Dosage: DOSE REDUCED FROM 20 MG TO 10 MG
     Dates: end: 201308
  2. ABILIFY TABS 10 MG [Suspect]
     Indication: PERSONALITY DISORDER
     Dosage: DOSE REDUCED FROM 20 MG TO 10 MG
     Dates: end: 201308
  3. CITALOPRAM [Concomitant]

REACTIONS (3)
  - Venous thrombosis [Recovered/Resolved]
  - Depressive symptom [Unknown]
  - Off label use [Unknown]
